FAERS Safety Report 19812903 (Version 3)
Quarter: 2021Q4

REPORT INFORMATION
  Report Type: Report from Study
  Country: CN (occurrence: CN)
  Receive Date: 20210910
  Receipt Date: 20211223
  Transmission Date: 20220303
  Serious: Yes (Hospitalization)
  Sender: FDA-Public Use
  Company Number: CN-BAYER-2021-207915

PATIENT
  Age: 64 Year
  Sex: Male

DRUGS (1)
  1. NEXAVAR [Suspect]
     Active Substance: SORAFENIB
     Indication: Hepatocellular carcinoma
     Dosage: UNK
     Route: 048

REACTIONS (5)
  - Tracheal disorder [Unknown]
  - Pneumonia [Not Recovered/Not Resolved]
  - Diarrhoea [Unknown]
  - Blood glucose increased [Unknown]
  - Nasopharyngitis [Unknown]
